FAERS Safety Report 9284459 (Version 1)
Quarter: 2013Q2

REPORT INFORMATION
  Report Type: Spontaneous
  Country: US (occurrence: US)
  Receive Date: 20130510
  Receipt Date: 20130510
  Transmission Date: 20140414
  Serious: No
  Sender: FDA-Public Use
  Company Number: US-009507513-1305USA002418

PATIENT
  Age: 62 Year
  Sex: Female

DRUGS (2)
  1. COZAAR [Suspect]
     Indication: BLOOD PRESSURE
     Dosage: 50 MG, ONCE A DAY
     Route: 048
     Dates: start: 20120503
  2. LEVOTHYROXINE SODIUM [Concomitant]

REACTIONS (2)
  - Antibody test abnormal [Unknown]
  - Angioedema [Not Recovered/Not Resolved]
